FAERS Safety Report 6313877-X (Version None)
Quarter: 2009Q3

REPORT INFORMATION
  Report Type: 
  Country: None (occurrence: None)
  Receive Date: 20090817
  Receipt Date: 20090817
  Transmission Date: 20100115
  Serious: No
  Sender: FDA-Public Use
  Company Number: None

PATIENT
  Age: 45 Year
  Sex: Female
  Weight: 85.7298 kg

DRUGS (3)
  1. CLONAZEPAM [Suspect]
     Indication: ANXIETY
     Dosage: 1 TWICE DAILY
     Dates: start: 20081101, end: 20090812
  2. CLONAZEPAM [Suspect]
     Indication: MOVEMENT DISORDER
     Dosage: 1 TWICE DAILY
     Dates: start: 20081101, end: 20090812
  3. CLONAZEPAM [Suspect]
     Indication: SLEEP DISORDER
     Dosage: 1 TWICE DAILY
     Dates: start: 20081101, end: 20090812

REACTIONS (5)
  - ANXIETY [None]
  - DRUG INEFFECTIVE [None]
  - HEADACHE [None]
  - MOVEMENT DISORDER [None]
  - PRODUCT QUALITY ISSUE [None]
